FAERS Safety Report 17130187 (Version 1)
Quarter: 2019Q4

REPORT INFORMATION
  Report Type: Spontaneous
  Country: DE (occurrence: DE)
  Receive Date: 20191209
  Receipt Date: 20191209
  Transmission Date: 20200122
  Serious: Yes (Hospitalization)
  Sender: FDA-Public Use
  Company Number: DE-MYLANLABS-2019M1119801

PATIENT
  Age: 57 Year
  Sex: Female
  Weight: 80 kg

DRUGS (1)
  1. BUPRENORPHINE. [Suspect]
     Active Substance: BUPRENORPHINE
     Indication: PAIN
     Dosage: 35 MICROGRAM, QH (35 MICROGRAMS/HOUR; 20 PCS)
     Route: 062
     Dates: start: 20190617, end: 20190711

REACTIONS (7)
  - Malaise [Unknown]
  - Skin reaction [Not Recovered/Not Resolved]
  - Product adhesion issue [Unknown]
  - Hypersensitivity [Unknown]
  - Discomfort [Unknown]
  - Amblyopia [Unknown]
  - Dizziness [Unknown]

NARRATIVE: CASE EVENT DATE: 20190709
